FAERS Safety Report 12252238 (Version 2)
Quarter: 2016Q3

REPORT INFORMATION
  Report Type: Spontaneous
  Country: JP (occurrence: JP)
  Receive Date: 20160411
  Receipt Date: 20160726
  Transmission Date: 20161109
  Serious: Yes (Life-Threatening)
  Sender: FDA-Public Use
  Company Number: JP-ROCHE-1733052

PATIENT
  Age: 66 Year
  Sex: Female
  Weight: 40 kg

DRUGS (5)
  1. K-SUPPLY [Suspect]
     Active Substance: POTASSIUM CHLORIDE
     Indication: BLOOD POTASSIUM DECREASED
     Route: 048
     Dates: start: 20160316, end: 20160321
  2. XELODA [Suspect]
     Active Substance: CAPECITABINE
     Indication: RECTAL CANCER
     Dosage: 2 WEEKS ADMINISTRATION FOLLOWED BY 1 WEEK REST
     Route: 048
     Dates: start: 20160309, end: 20160321
  3. AVASTIN [Suspect]
     Active Substance: BEVACIZUMAB
     Indication: RECTAL CANCER
     Route: 041
     Dates: start: 20160309, end: 20160309
  4. PYDOXAL [Concomitant]
     Active Substance: PYRIDOXAL
     Indication: PROPHYLAXIS
     Route: 048
     Dates: start: 20160309, end: 20160321
  5. SODIUM CHLORIDE. [Concomitant]
     Active Substance: SODIUM CHLORIDE
     Dosage: DOSAGE IS UNCERTAIN.?ISOTONIC SOLUTION
     Route: 065
     Dates: start: 20160309

REACTIONS (3)
  - Small intestinal perforation [Recovering/Resolving]
  - Peritonitis [Not Recovered/Not Resolved]
  - Blood potassium decreased [Unknown]

NARRATIVE: CASE EVENT DATE: 20160321
